FAERS Safety Report 6855659-6 (Version None)
Quarter: 2010Q3

REPORT INFORMATION
  Report Type: 
  Country: None (occurrence: None)
  Receive Date: 20100719
  Receipt Date: 20100513
  Transmission Date: 20110219
  Serious: No
  Sender: FDA-Public Use
  Company Number: US-KINGPHARMUSA00001-K201000610

PATIENT
  Sex: Male

DRUGS (1)
  1. LEVOXYL [Suspect]
     Dosage: UNK

REACTIONS (2)
  - ECZEMA [None]
  - RASH [None]
